FAERS Safety Report 8540854-0 (Version None)
Quarter: 2012Q3

REPORT INFORMATION
  Report Type: 
  Country: None (occurrence: None)
  Receive Date: 20120726
  Receipt Date: 20120716
  Transmission Date: 20120928
  Serious: Yes (Other)
  Sender: FDA-Public Use
  Company Number: US-009507513-1111USA02496

PATIENT

DRUGS (3)
  1. FOSAMAX [Suspect]
     Indication: OSTEOPOROSIS
     Route: 048
  2. FOSAMAX PLUS D [Suspect]
     Indication: OSTEOPOROSIS
     Dosage: 70 MG, UNK
     Route: 048
     Dates: start: 20050101, end: 20070101
  3. LIPITOR [Concomitant]
     Indication: HYPERLIPIDAEMIA
     Dosage: 10 MG, QD
     Dates: start: 19900101, end: 20070101

REACTIONS (26)
  - OSTEOARTHRITIS [None]
  - JOINT RANGE OF MOTION DECREASED [None]
  - HEADACHE [None]
  - HYPOAESTHESIA [None]
  - UTERINE PROLAPSE [None]
  - SINUS CONGESTION [None]
  - BREAST MASS [None]
  - OSTEONECROSIS OF JAW [None]
  - NERVOUS SYSTEM DISORDER [None]
  - JAW DISORDER [None]
  - HYPOREFLEXIA [None]
  - ADVERSE DRUG REACTION [None]
  - GASTROOESOPHAGEAL REFLUX DISEASE [None]
  - JOINT CREPITATION [None]
  - OSTEOPENIA [None]
  - PARAESTHESIA [None]
  - STRESS [None]
  - ARTHROPATHY [None]
  - DYSPHAGIA [None]
  - PAIN IN JAW [None]
  - RASH [None]
  - TEMPOROMANDIBULAR JOINT SYNDROME [None]
  - CYSTOCELE [None]
  - PAIN IN EXTREMITY [None]
  - BRUXISM [None]
  - PELVIC PROLAPSE [None]
